FAERS Safety Report 20532326 (Version 1)
Quarter: 2022Q1

REPORT INFORMATION
  Report Type: Spontaneous
  Country: US (occurrence: None)
  Receive Date: 20220301
  Receipt Date: 20220301
  Transmission Date: 20220423
  Serious: Yes (Hospitalization, Other)
  Sender: FDA-Public Use
  Company Number: None

PATIENT
  Age: 43 Year
  Sex: Male

DRUGS (1)
  1. VALRUBICIN [Suspect]
     Active Substance: VALRUBICIN
     Indication: Product used for unknown indication
     Dosage: 800 MG ONCE OTHER?
     Dates: start: 20211026, end: 20211216

REACTIONS (2)
  - Erythema multiforme [None]
  - Chronic kidney disease [None]

NARRATIVE: CASE EVENT DATE: 20211229
